FAERS Safety Report 12011154 (Version 4)
Quarter: 2016Q2

REPORT INFORMATION
  Report Type: Report from Study
  Country: CN (occurrence: CN)
  Receive Date: 20160205
  Receipt Date: 20160404
  Transmission Date: 20160815
  Serious: Yes (Other)
  Sender: FDA-Public Use
  Company Number: PHHY2016CN011686

PATIENT
  Age: 22 Year
  Sex: Female

DRUGS (76)
  1. MYFORTIC [Suspect]
     Active Substance: MYCOPHENOLATE SODIUM
     Indication: KIDNEY TRANSPLANT REJECTION
     Dosage: 900 MG, QD
     Route: 065
     Dates: start: 20151017, end: 20151027
  2. BASILIXIMAB [Suspect]
     Active Substance: BASILIXIMAB
     Dosage: 20 MG, QD
     Route: 065
     Dates: start: 20151019, end: 20151019
  3. TACROLIMUS. [Suspect]
     Active Substance: TACROLIMUS
     Dosage: 4 MG, QD
     Route: 065
     Dates: start: 20151023, end: 20151027
  4. PHENOBARBITAL SODIUM. [Concomitant]
     Active Substance: PHENOBARBITAL SODIUM
     Indication: SEDATIVE THERAPY
     Dosage: 100 MG, UNK
     Route: 030
     Dates: start: 20151015, end: 20151015
  5. BISOPROLOL FUMARATE. [Concomitant]
     Active Substance: BISOPROLOL FUMARATE
     Indication: BLOOD PRESSURE DECREASED
     Dosage: 5 MG, QD
     Route: 048
     Dates: start: 20151018, end: 20151102
  6. BISOPROLOL FUMARATE. [Concomitant]
     Active Substance: BISOPROLOL FUMARATE
     Dosage: 10 MG, QD
     Route: 048
     Dates: start: 20151106
  7. SODIUM LACTATE COMPOUND INJECTION [Concomitant]
     Indication: INFUSION
     Dosage: 1000 ML, QD
     Route: 042
     Dates: start: 20151015, end: 20151016
  8. IPRATROPIUM BROMIDE. [Concomitant]
     Active Substance: IPRATROPIUM BROMIDE
     Indication: LUNG DISORDER
  9. AMBROXOL HYDROCHLORIDE [Concomitant]
     Active Substance: AMBROXOL HYDROCHLORIDE
     Indication: LUNG DISORDER
     Dosage: 15 MG, TID
     Route: 055
     Dates: start: 20151016, end: 20151019
  10. AMBROXOL HYDROCHLORIDE [Concomitant]
     Active Substance: AMBROXOL HYDROCHLORIDE
     Indication: PRODUCTIVE COUGH
  11. DILTIAZEM HYDROCHLORIDE. [Concomitant]
     Active Substance: DILTIAZEM HYDROCHLORIDE
     Dosage: 30 MG, BID
     Route: 048
     Dates: start: 20151106
  12. IRON SUCROSE [Concomitant]
     Active Substance: IRON SUCROSE
     Indication: MINERAL SUPPLEMENTATION
     Dosage: 1 VIAL, UNK
     Route: 042
     Dates: start: 20151016, end: 20151016
  13. RECOMBINANT HUMAN ERYTHROPOIETIN [Concomitant]
     Active Substance: ERYTHROPOIETIN
     Indication: ERYTHROPOIESIS ABNORMAL
     Dosage: 10000 IU, UNK
     Route: 065
     Dates: start: 20151017, end: 20151017
  14. FUROSEMIDE. [Concomitant]
     Active Substance: FUROSEMIDE
     Indication: POLYURIA
     Dosage: 80 MG, UNK
     Route: 042
     Dates: start: 20151018, end: 20151026
  15. METHYLPREDNISOLONE. [Suspect]
     Active Substance: METHYLPREDNISOLONE
     Dosage: 400 MG, QD
     Route: 065
     Dates: start: 20151018, end: 20151018
  16. TACROLIMUS. [Suspect]
     Active Substance: TACROLIMUS
     Dosage: 4.5 MG, QD
     Route: 065
     Dates: start: 20151019, end: 20151022
  17. TACROLIMUS. [Suspect]
     Active Substance: TACROLIMUS
     Dosage: 3.5 MG, QD
     Route: 065
     Dates: start: 20151030
  18. POTASSIUM CHLORIDE. [Concomitant]
     Active Substance: POTASSIUM CHLORIDE
     Indication: SUPPLEMENTATION THERAPY
     Dosage: 1.5 G, UNK
     Route: 042
     Dates: start: 20151018, end: 20151018
  19. SMECTITE [Concomitant]
     Active Substance: MONTMORILLONITE
     Indication: DIARRHOEA
     Dosage: 6 G, UNK
     Route: 048
     Dates: start: 20151018, end: 20151018
  20. NITRENDIPINE [Concomitant]
     Active Substance: NITRENDIPINE
     Indication: BLOOD PRESSURE DECREASED
     Dosage: 10 MG, UNK
     Route: 048
     Dates: start: 20151104, end: 20151104
  21. NITRENDIPINE [Concomitant]
     Active Substance: NITRENDIPINE
     Dosage: 10 MG, UNK
     Route: 048
     Dates: start: 20151105, end: 20151105
  22. SODIUM LACTATE COMPOUND INJECTION [Concomitant]
     Dosage: 500 MG, QD
     Route: 042
     Dates: start: 20151017, end: 20151017
  23. CEFACLOR. [Concomitant]
     Active Substance: CEFACLOR
     Dosage: 250 MG, TID
     Route: 048
     Dates: start: 20151029, end: 20151102
  24. IPRATROPIUM BROMIDE. [Concomitant]
     Active Substance: IPRATROPIUM BROMIDE
     Indication: PRODUCTIVE COUGH
     Dosage: 1 VIAL, TID
     Route: 055
     Dates: start: 20151016, end: 20151019
  25. DOPAMINE HYDROCHLORIDE. [Concomitant]
     Active Substance: DOPAMINE HYDROCHLORIDE
     Indication: BLOOD PRESSURE INCREASED
     Dosage: 180 MG, QD
     Route: 042
     Dates: start: 20151016, end: 20151017
  26. CETIRIZINE HYDROCHLORIDE. [Concomitant]
     Active Substance: CETIRIZINE HYDROCHLORIDE
     Dosage: 10 MG, UNK
     Route: 048
     Dates: start: 20151030, end: 20151030
  27. FAT EMULSION NOS [Concomitant]
     Active Substance: EGG PHOSPHOLIPIDS\SAFFLOWER OIL\SOYBEAN OIL
     Dosage: 500 ML, UNK
     Route: 042
     Dates: start: 20151016, end: 20151016
  28. METHYLPREDNISOLONE SODIUM SUCCINATE. [Concomitant]
     Active Substance: METHYLPREDNISOLONE SODIUM SUCCINATE
     Dosage: 40 MG, UNK
     Route: 042
     Dates: start: 20151030, end: 20151030
  29. METHYLPREDNISOLONE. [Suspect]
     Active Substance: METHYLPREDNISOLONE
     Dosage: 400 MG, QD
     Route: 065
     Dates: start: 20151017, end: 20151017
  30. TACROLIMUS. [Suspect]
     Active Substance: TACROLIMUS
     Indication: KIDNEY TRANSPLANT REJECTION
     Dosage: 5 MG, QD
     Route: 065
     Dates: start: 20151017, end: 20151018
  31. SODIUM CHLORIDE. [Concomitant]
     Active Substance: SODIUM CHLORIDE
     Indication: INFUSION
     Dosage: 1000 ML, QD
     Route: 042
     Dates: start: 20151015, end: 20151016
  32. CARBOHYDRATES [Concomitant]
     Active Substance: CARBOHYDRATES
     Indication: SUPPLEMENTATION THERAPY
     Dosage: 500 ML, QD
     Route: 042
     Dates: start: 20151016, end: 20151018
  33. CEFACLOR. [Concomitant]
     Active Substance: CEFACLOR
     Dosage: 259 MG, TID
     Route: 048
     Dates: start: 20151102, end: 20151106
  34. BUDESONID [Concomitant]
     Active Substance: BUDESONIDE
     Indication: PRODUCTIVE COUGH
  35. COENZYME [Concomitant]
     Active Substance: UBIDECARENONE
     Dosage: 2 VIAL, QD
     Route: 048
     Dates: start: 20151102, end: 20151106
  36. COENZYME [Concomitant]
     Active Substance: UBIDECARENONE
     Dosage: 2 VIAL, UNK
     Route: 042
     Dates: start: 20151023, end: 20151023
  37. METHYLPREDNISOLONE SODIUM SUCCINATE. [Concomitant]
     Active Substance: METHYLPREDNISOLONE SODIUM SUCCINATE
     Indication: HYPERSENSITIVITY
     Dosage: 40 MG, UNK
     Route: 042
     Dates: start: 20151015, end: 20151015
  38. METHYLPREDNISOLONE SODIUM SUCCINATE. [Concomitant]
     Active Substance: METHYLPREDNISOLONE SODIUM SUCCINATE
     Dosage: 40 MG, UNK
     Route: 042
     Dates: start: 20151022, end: 20151022
  39. PHOSPHOCREATINE SODIUM [Concomitant]
     Dosage: 1000 MG, QD
     Route: 042
     Dates: start: 20151016, end: 20151102
  40. MYFORTIC [Suspect]
     Active Substance: MYCOPHENOLATE SODIUM
     Dosage: 720 MG, QD
     Route: 065
     Dates: start: 20151028
  41. METHYLPREDNISOLONE. [Suspect]
     Active Substance: METHYLPREDNISOLONE
     Indication: KIDNEY TRANSPLANT REJECTION
     Dosage: 500 MG, QD
     Route: 065
     Dates: start: 20151015, end: 20151015
  42. IRON SUCROSE [Concomitant]
     Active Substance: IRON SUCROSE
     Dosage: 2 VIAL, QD
     Route: 042
     Dates: start: 20151017, end: 20151030
  43. METHYLPREDNISOLONE SODIUM SUCCINATE. [Concomitant]
     Active Substance: METHYLPREDNISOLONE SODIUM SUCCINATE
     Dosage: 40 MG, UNK
     Route: 042
     Dates: start: 20151105, end: 20151105
  44. PHOSPHOCREATINE SODIUM [Concomitant]
     Indication: CARDIOVASCULAR EVENT PROPHYLAXIS
     Dosage: 2000 MG, UNK
     Route: 042
     Dates: start: 20151016, end: 20151016
  45. BETALOC [Concomitant]
     Active Substance: METOPROLOL TARTRATE
     Indication: BLOOD PRESSURE DECREASED
     Dosage: 25 MG, UNK
     Route: 048
     Dates: start: 20151018, end: 20151018
  46. POTASSIUM CHLORIDE. [Concomitant]
     Active Substance: POTASSIUM CHLORIDE
     Dosage: 1500 MG, UNK
     Route: 042
     Dates: start: 20151018, end: 20151018
  47. SODIUM LACTATE COMPOUND INJECTION [Concomitant]
     Dosage: 500 ML, QD
     Route: 042
     Dates: start: 20151018, end: 20151018
  48. CEPHAZOLINE SODIUM [Concomitant]
     Indication: SKIN TEST
     Dosage: 0.5 UG, UNK
     Route: 065
     Dates: start: 20151016, end: 20151016
  49. NITROGLYCERIN. [Concomitant]
     Active Substance: NITROGLYCERIN
     Indication: PAIN
     Dosage: 500 MG, UNK
     Route: 048
     Dates: start: 20151018, end: 20151018
  50. DILTIAZEM HYDROCHLORIDE. [Concomitant]
     Active Substance: DILTIAZEM HYDROCHLORIDE
     Dosage: 30 MG, BID
     Route: 048
     Dates: start: 20151016, end: 20151021
  51. RECOMBINANT HUMAN ERYTHROPOIETIN [Concomitant]
     Active Substance: ERYTHROPOIETIN
     Dosage: 10000 IU, QD
     Route: 065
     Dates: start: 20151017, end: 20151030
  52. PANTOLOC//PANTOPRAZOLE SODIUM SESQUIHYDRATE [Concomitant]
     Active Substance: PANTOPRAZOLE SODIUM
     Dosage: 40 MG, BID
     Route: 042
     Dates: start: 20151016, end: 20151102
  53. LEVOCARNITIN [Concomitant]
     Indication: PRODUCT USED FOR UNKNOWN INDICATION
     Dosage: 2 VIAL,
     Route: 042
     Dates: start: 20151016, end: 20151016
  54. BASILIXIMAB [Suspect]
     Active Substance: BASILIXIMAB
     Indication: KIDNEY TRANSPLANT REJECTION
     Dosage: 20 MG, QD
     Route: 065
     Dates: start: 20151015, end: 20151015
  55. METHYLPREDNISOLONE. [Suspect]
     Active Substance: METHYLPREDNISOLONE
     Dosage: 500 MG, QD
     Route: 065
     Dates: start: 20151016, end: 20151016
  56. BISOPROLOL FUMARATE. [Concomitant]
     Active Substance: BISOPROLOL FUMARATE
     Dosage: 5 MG, QD
     Route: 048
     Dates: start: 20151102, end: 20151106
  57. CEFACLOR. [Concomitant]
     Active Substance: CEFACLOR
     Indication: INFECTION PROPHYLAXIS
     Dosage: 250 MG, TID
     Route: 048
     Dates: start: 20151023, end: 20151026
  58. RECOMBINANT HUMAN ERYTHROPOIETIN [Concomitant]
     Active Substance: ERYTHROPOIETIN
     Dosage: 9999 IU, UNK
     Route: 065
     Dates: start: 20151016, end: 20151016
  59. GLUTATHIONE [Concomitant]
     Active Substance: GLUTATHIONE
     Dosage: 1200 MG, QD
     Route: 042
     Dates: start: 20151016, end: 20151102
  60. PANTOLOC//PANTOPRAZOLE SODIUM SESQUIHYDRATE [Concomitant]
     Active Substance: PANTOPRAZOLE SODIUM
     Indication: PROPHYLAXIS
     Dosage: 80 MG, UNK
     Route: 042
     Dates: start: 20151016, end: 20151016
  61. LEVOCARNITIN [Concomitant]
     Dosage: 2 OT, QD
     Route: 042
     Dates: start: 20151016, end: 20151102
  62. MYFORTIC [Suspect]
     Active Substance: MYCOPHENOLATE SODIUM
     Indication: RENAL TRANSPLANT
     Dosage: 1440 MG, QD
     Route: 065
     Dates: start: 20151016, end: 20151016
  63. ELECTROLYTE SOLUTIONS [Concomitant]
     Active Substance: UNSPECIFIED INGREDIENT
     Indication: SUPPLEMENTATION THERAPY
     Dosage: 500 ML, QD
     Route: 042
     Dates: start: 20151016, end: 20151018
  64. DILTIAZEM HYDROCHLORIDE. [Concomitant]
     Active Substance: DILTIAZEM HYDROCHLORIDE
     Indication: BLOOD DISORDER
     Dosage: 60 MG, BID
     Route: 048
     Dates: start: 20151021, end: 20151023
  65. COENZYME [Concomitant]
     Active Substance: UBIDECARENONE
     Indication: SUPPLEMENTATION THERAPY
     Dosage: 2 VIAL, QD
     Route: 042
     Dates: start: 20151023, end: 20151102
  66. PREDNISONE. [Suspect]
     Active Substance: PREDNISONE
     Indication: KIDNEY TRANSPLANT REJECTION
     Dosage: 20 MG, QD
     Route: 065
     Dates: start: 20151018, end: 20151102
  67. DIAZEPAM. [Concomitant]
     Active Substance: DIAZEPAM
     Indication: SEDATION
     Dosage: 10 MG, UNK
     Route: 030
     Dates: start: 20151018, end: 20151018
  68. AMINO ACID [Concomitant]
     Indication: SUPPLEMENTATION THERAPY
     Dosage: 500 ML, QD
     Route: 042
     Dates: start: 20151017, end: 20151018
  69. BUDESONID [Concomitant]
     Active Substance: BUDESONIDE
     Indication: LUNG DISORDER
     Dosage: 1 VIAL, TID
     Route: 055
     Dates: start: 20151016, end: 20151019
  70. DILTIAZEM HYDROCHLORIDE. [Concomitant]
     Active Substance: DILTIAZEM HYDROCHLORIDE
     Dosage: 30 MG, BID
     Route: 048
     Dates: start: 20151023, end: 20151102
  71. CETIRIZINE HYDROCHLORIDE. [Concomitant]
     Active Substance: CETIRIZINE HYDROCHLORIDE
     Indication: HYPERSENSITIVITY
     Dosage: 10 MG, UNK
     Route: 048
     Dates: start: 20151022, end: 20151022
  72. CETIRIZINE HYDROCHLORIDE. [Concomitant]
     Active Substance: CETIRIZINE HYDROCHLORIDE
     Dosage: 10 MG, UNK
     Route: 042
     Dates: start: 20151015, end: 20151015
  73. CETIRIZINE HYDROCHLORIDE. [Concomitant]
     Active Substance: CETIRIZINE HYDROCHLORIDE
     Dosage: 10 MG, UNK
     Route: 048
     Dates: start: 20151105, end: 20151105
  74. FAT EMULSION NOS [Concomitant]
     Active Substance: EGG PHOSPHOLIPIDS\SAFFLOWER OIL\SOYBEAN OIL
     Indication: NUTRITIONAL SUPPLEMENTATION
     Dosage: 250 ML, QD
     Route: 042
     Dates: start: 20151017, end: 20151018
  75. GLUTATHIONE [Concomitant]
     Active Substance: GLUTATHIONE
     Indication: PROPHYLAXIS
     Dosage: 1200 MG, UNK
     Route: 042
     Dates: start: 20151016, end: 20151016
  76. SODIUM CHLORIDE. [Concomitant]
     Active Substance: SODIUM CHLORIDE
     Indication: SUPPLEMENTATION THERAPY
     Dosage: 500 ML, UNK
     Route: 042
     Dates: start: 20151016, end: 20151016

REACTIONS (12)
  - Heart rate increased [Unknown]
  - Blood triglycerides increased [Unknown]
  - Haemoglobin decreased [Unknown]
  - Blood creatinine increased [Unknown]
  - Diarrhoea [Recovering/Resolving]
  - Cardiac failure [Recovered/Resolved]
  - Dyspnoea [Unknown]
  - Upper respiratory tract infection [Recovering/Resolving]
  - Blood cholesterol increased [Unknown]
  - White blood cell count increased [Unknown]
  - Blood glucose increased [Unknown]
  - Neutrophil count increased [Unknown]

NARRATIVE: CASE EVENT DATE: 20151018
